FAERS Safety Report 18763298 (Version 1)
Quarter: 2021Q1

REPORT INFORMATION
  Report Type: Spontaneous
  Country: NL (occurrence: NL)
  Receive Date: 20210120
  Receipt Date: 20210120
  Transmission Date: 20210419
  Serious: Yes (Other)
  Sender: FDA-Public Use
  Company Number: NL-TEVA-2021-NL-1870579

PATIENT
  Sex: Female

DRUGS (3)
  1. METOPROLOL TABLET MGA 50MG (SUCCINAAT) / BRAND NAME NOT SPECIFIED [Suspect]
     Active Substance: METOPROLOL SUCCINATE
     Indication: PRODUCT USED FOR UNKNOWN INDICATION
     Dosage: 50 MILLIGRAM DAILY;
     Route: 065
     Dates: start: 20201029, end: 20201031
  2. ACETYLSALICYLZUUR TABLET  80MG / BRAND NAME NOT SPECIFIED [Concomitant]
     Active Substance: ASPIRIN
     Dosage: 80MG, THERAPY START DATE ASKU, THERAPY END DATE ASKU
  3. CALCIUMCARB/COLECALC KAUWTB 1,25G/800IE (500MG CA) / CALCI CHEW D3 KAU [Concomitant]
     Dosage: 1.25 G (GRAM) / 800 UNITS, THERAPY START DATE ASKU, THERAPY END DATE ASKU

REACTIONS (2)
  - Pulmonary embolism [Recovered/Resolved]
  - Coronary artery disease [Recovered/Resolved]
